FAERS Safety Report 17295966 (Version 2)
Quarter: 2020Q1

REPORT INFORMATION
  Report Type: Report from Study
  Country: None (occurrence: US)
  Receive Date: 20200122
  Receipt Date: 20200313
  Transmission Date: 20200409
  Serious: Yes (Death)
  Sender: FDA-Public Use
  Company Number: US-ABBVIE-20K-163-3242553-00

PATIENT
  Sex: Male

DRUGS (11)
  1. VENCLEXTA [Suspect]
     Active Substance: VENETOCLAX
     Dosage: THEN AFTER TAKE 200MG EVERY DAY
     Route: 048
  2. VENCLEXTA [Suspect]
     Active Substance: VENETOCLAX
     Dosage: THEN AFTER TAKE 200MG EVERY DAY
     Route: 048
  3. VENCLEXTA [Suspect]
     Active Substance: VENETOCLAX
     Dosage: THEN 20MG DAILY FOR 7 DAYS
     Route: 048
  4. VENCLEXTA [Suspect]
     Active Substance: VENETOCLAX
     Indication: B-CELL SMALL LYMPHOCYTIC LYMPHOMA
     Route: 048
  5. VENCLEXTA [Suspect]
     Active Substance: VENETOCLAX
     Dosage: TAKE 10MG DAILY FOR 7 DAYS
     Route: 048
  6. VENCLEXTA [Suspect]
     Active Substance: VENETOCLAX
     Dosage: THEN 20MG DAILY FOR 7 DAYS
     Route: 048
  7. VENCLEXTA [Suspect]
     Active Substance: VENETOCLAX
     Dosage: THEN WEEK 3?TAKE 50MG TABLET FOR 7 DAYS
     Route: 048
  8. VENCLEXTA [Suspect]
     Active Substance: VENETOCLAX
     Dosage: THEN WEEK 4?TAKE 100MG TABLET FOR 7 DAYS
     Route: 048
  9. VENCLEXTA [Suspect]
     Active Substance: VENETOCLAX
     Dosage: TAKE 10MG DAILY FOR 7 DAYS
     Route: 048
  10. VENCLEXTA [Suspect]
     Active Substance: VENETOCLAX
     Dosage: THEN WEEK 4 TAKE 100MG TABLET FOR 7 DAYS
     Route: 048
  11. TARCEVA [Concomitant]
     Active Substance: ERLOTINIB HYDROCHLORIDE
     Indication: PRODUCT USED FOR UNKNOWN INDICATION

REACTIONS (1)
  - Death [Fatal]
